FAERS Safety Report 7820927-8 (Version None)
Quarter: 2011Q4

REPORT INFORMATION
  Report Type: 
  Country: None (occurrence: None)
  Receive Date: 20111018
  Receipt Date: 20111011
  Transmission Date: 20120403
  Serious: Yes (Hospitalization)
  Sender: FDA-Public Use
  Company Number: JP-GLAXOSMITHKLINE-B0749723A

PATIENT
  Sex: Female
  Weight: 53 kg

DRUGS (6)
  1. OZEX [Concomitant]
     Indication: CYSTITIS
     Route: 048
     Dates: start: 20110804, end: 20110808
  2. LAC B [Concomitant]
     Route: 048
     Dates: start: 20110804, end: 20110808
  3. LEVOTHYROXINE SODIUM [Concomitant]
     Dosage: 50MCG PER DAY
     Route: 048
  4. TANATRIL [Concomitant]
     Dosage: 2.5MG PER DAY
     Route: 048
  5. DEZOLAM [Concomitant]
     Dosage: 1.5MG PER DAY
     Route: 048
  6. PROMACTA [Suspect]
     Indication: IDIOPATHIC THROMBOCYTOPENIC PURPURA
     Dosage: 12.5MG PER DAY
     Route: 048
     Dates: start: 20110720, end: 20110826

REACTIONS (2)
  - THROMBOCYTOPENIA [None]
  - PURPURA [None]
